FAERS Safety Report 16007059 (Version 2)
Quarter: 2019Q2

REPORT INFORMATION
  Report Type: Spontaneous
  Country: US (occurrence: US)
  Receive Date: 20190225
  Receipt Date: 20190405
  Transmission Date: 20190711
  Serious: No
  Sender: FDA-Public Use
  Company Number: US-ASTRAZENECA-2019SE19015

PATIENT
  Sex: Female

DRUGS (2)
  1. SEREVENT DISKUS [Concomitant]
     Active Substance: SALMETEROL XINAFOATE
     Dosage: UNKNOWN
     Route: 065
  2. TUDORZA PRESSAIR [Suspect]
     Active Substance: ACLIDINIUM BROMIDE
     Indication: CHRONIC OBSTRUCTIVE PULMONARY DISEASE
     Dosage: 400UG/INHAL TWO TIMES A DAY
     Route: 055
     Dates: start: 20190116

REACTIONS (6)
  - Feeling abnormal [Unknown]
  - Palpitations [Unknown]
  - Intentional device misuse [Unknown]
  - Product dose omission [Unknown]
  - Extra dose administered [Unknown]
  - Device malfunction [Unknown]
